FAERS Safety Report 11768054 (Version 1)
Quarter: 2015Q4

REPORT INFORMATION
  Report Type: Spontaneous
  Country: US (occurrence: US)
  Receive Date: 20151123
  Receipt Date: 20151123
  Transmission Date: 20160304
  Serious: No
  Sender: FDA-Public Use
  Company Number: US-JNJFOC-20151022643

PATIENT
  Age: 80 Year
  Sex: Female
  Weight: 41.28 kg

DRUGS (5)
  1. ZYRTEC [Suspect]
     Active Substance: CETIRIZINE HYDROCHLORIDE
     Indication: LACRIMATION INCREASED
     Route: 048
     Dates: start: 20151006, end: 20151006
  2. ZYRTEC [Suspect]
     Active Substance: CETIRIZINE HYDROCHLORIDE
     Indication: HYPERSENSITIVITY
     Route: 048
     Dates: start: 20151006, end: 20151006
  3. VITAMINS NOS [Concomitant]
     Active Substance: VITAMINS
     Indication: NUTRITIONAL SUPPLEMENTATION
     Route: 065
  4. ZYRTEC [Suspect]
     Active Substance: CETIRIZINE HYDROCHLORIDE
     Indication: RHINORRHOEA
     Route: 048
     Dates: start: 20151006, end: 20151006
  5. TOLTERODINE [Concomitant]
     Active Substance: TOLTERODINE
     Indication: HYPERTONIC BLADDER
     Route: 065

REACTIONS (2)
  - Product use issue [Unknown]
  - Wrong patient received medication [Unknown]
